FAERS Safety Report 21088026 (Version 1)
Quarter: 2022Q3

REPORT INFORMATION
  Report Type: Spontaneous
  Country: PT (occurrence: PT)
  Receive Date: 20220715
  Receipt Date: 20220715
  Transmission Date: 20221027
  Serious: Yes (Hospitalization)
  Sender: FDA-Public Use
  Company Number: PT-TEO-20221668

PATIENT
  Age: 64 Year
  Sex: Female

DRUGS (3)
  1. VANCOMYCIN [Suspect]
     Active Substance: VANCOMYCIN
     Indication: Product used for unknown indication
     Dosage: UNK
     Route: 065
  2. WARFARIN [Suspect]
     Active Substance: WARFARIN
     Indication: Atrial fibrillation
     Dosage: UNK
     Route: 065
  3. GENTAMICIN [Suspect]
     Active Substance: GENTAMICIN
     Indication: Product used for unknown indication
     Dosage: UNK
     Route: 065

REACTIONS (19)
  - Crepitations [Unknown]
  - Pulmonary oedema [Unknown]
  - Conjunctival hyperaemia [Unknown]
  - Bedridden [Unknown]
  - Eyelid ptosis [Unknown]
  - Endophthalmitis [Unknown]
  - Asthenia [Unknown]
  - Seizure [Unknown]
  - Leukocyturia [Unknown]
  - Vision blurred [Unknown]
  - Haemorrhage [Unknown]
  - Infective aneurysm [Unknown]
  - Eye pain [Unknown]
  - International normalised ratio increased [Unknown]
  - Hypopyon [Unknown]
  - Weight decreased [Unknown]
  - Decreased appetite [Unknown]
  - Ocular discomfort [Unknown]
  - Pleural effusion [Unknown]
